FAERS Safety Report 8506489 (Version 2)
Quarter: 2020Q3

REPORT INFORMATION
  Report Type: Report from Study
  Country: US (occurrence: US)
  Receive Date: 20120412
  Receipt Date: 20120814
  Transmission Date: 20201104
  Serious: Yes (Other)
  Sender: FDA-Public Use
  Company Number: US-JNJFOC-20120404036

PATIENT
  Age: 53 Year
  Sex: Female
  Weight: 142 kg

DRUGS (12)
  1. METFORMIN HYDROCHLORIDE. [Concomitant]
     Active Substance: METFORMIN HYDROCHLORIDE
     Indication: DIABETES MELLITUS
     Route: 048
     Dates: start: 200805
  2. BENICAR [Concomitant]
     Active Substance: OLMESARTAN MEDOXOMIL
     Route: 048
     Dates: start: 201003, end: 20120319
  3. FLUTICASONE. [Concomitant]
     Active Substance: FLUTICASONE
     Indication: MULTIPLE ALLERGIES
     Route: 045
     Dates: start: 20091113
  4. BENICAR [Concomitant]
     Active Substance: OLMESARTAN MEDOXOMIL
     Indication: GASTROOESOPHAGEAL REFLUX DISEASE
     Route: 048
     Dates: start: 20100320
  5. RANITIDINE. [Concomitant]
     Active Substance: RANITIDINE
     Indication: GASTROOESOPHAGEAL REFLUX DISEASE
     Route: 048
     Dates: start: 1984
  6. CISAPRIDE [Suspect]
     Active Substance: CISAPRIDE
     Indication: GASTROINTESTINAL MOTILITY DISORDER
     Route: 048
     Dates: start: 20120331, end: 20120404
  7. SINGULAIR [Concomitant]
     Active Substance: MONTELUKAST SODIUM
     Indication: MULTIPLE ALLERGIES
     Route: 048
     Dates: start: 200906
  8. CISAPRIDE [Suspect]
     Active Substance: CISAPRIDE
     Indication: GASTROOESOPHAGEAL REFLUX DISEASE
     Route: 048
     Dates: start: 20120331, end: 20120404
  9. ALEVE [Concomitant]
     Active Substance: NAPROXEN SODIUM
     Indication: ARTHRALGIA
     Route: 048
     Dates: start: 201011
  10. GABAPENTIN. [Concomitant]
     Active Substance: GABAPENTIN
     Indication: NEUROPATHY PERIPHERAL
     Route: 048
     Dates: start: 20110118
  11. HYDROCHLOROTHIAZIDE. [Concomitant]
     Active Substance: HYDROCHLOROTHIAZIDE
     Indication: HYPERTENSION
     Route: 048
     Dates: start: 200706
  12. OMEPRAZOLE. [Concomitant]
     Active Substance: OMEPRAZOLE
     Indication: GASTROOESOPHAGEAL REFLUX DISEASE
     Route: 048
     Dates: start: 2005

REACTIONS (1)
  - Electrocardiogram QT prolonged [Recovered/Resolved]

NARRATIVE: CASE EVENT DATE: 20120404
